FAERS Safety Report 4593818-6 (Version None)
Quarter: 2005Q1

REPORT INFORMATION
  Report Type: 
  Country: None (occurrence: None)
  Receive Date: 20050301
  Receipt Date: 20050216
  Transmission Date: 20050727
  Serious: Yes (Other)
  Sender: FDA-Public Use
  Company Number: US-AMGEN-US116107

PATIENT
  Sex: Female

DRUGS (4)
  1. ENBREL [Suspect]
     Indication: RHEUMATOID ARTHRITIS
     Dates: start: 20020626
  2. METHOTREXATE [Concomitant]
  3. PREDNISONE [Concomitant]
  4. CELEBREX [Concomitant]

REACTIONS (6)
  - BLEPHAROSPASM [None]
  - GUILLAIN-BARRE SYNDROME [None]
  - HEPATIC STEATOSIS [None]
  - OPTIC NEURITIS [None]
  - ORTHOPNOEA [None]
  - SYNOVITIS [None]
